FAERS Safety Report 24191409 (Version 2)
Quarter: 2024Q3

REPORT INFORMATION
  Report Type: Spontaneous
  Country: IE (occurrence: IE)
  Receive Date: 20240808
  Receipt Date: 20240822
  Transmission Date: 20241016
  Serious: Yes (Hospitalization)
  Sender: TEVA
  Company Number: IE-TEVA-VS-3228782

PATIENT
  Sex: Female

DRUGS (42)
  1. DICLOFENAC [Suspect]
     Active Substance: DICLOFENAC
     Indication: Analgesic intervention supportive therapy
     Route: 065
  2. ALFENTANIL [Suspect]
     Active Substance: ALFENTANIL
     Indication: Analgesic therapy
     Dosage: INFUSION
     Route: 058
  3. ALFENTANIL [Suspect]
     Active Substance: ALFENTANIL
     Indication: Analgesic therapy
     Dosage: INFUSION
     Route: 058
  4. ALFENTANIL [Suspect]
     Active Substance: ALFENTANIL
     Indication: Analgesic therapy
     Dosage: INFUSION
     Route: 058
  5. ALFENTANIL [Suspect]
     Active Substance: ALFENTANIL
     Indication: Analgesic therapy
     Dosage: INFUSION
     Route: 058
  6. ALFENTANIL [Suspect]
     Active Substance: ALFENTANIL
     Indication: Analgesic therapy
     Dosage: INFUSION
     Route: 058
  7. FUROSEMIDE [Suspect]
     Active Substance: FUROSEMIDE
     Indication: Increased upper airway secretion
     Route: 065
  8. SCOPOLAMINE HYDROBROMIDE [Suspect]
     Active Substance: SCOPOLAMINE HYDROBROMIDE
     Indication: Increased upper airway secretion
     Dosage: INFUSION
     Route: 058
  9. LEVOMEPROMAZINE HYDROCHLORIDE [Suspect]
     Active Substance: LEVOMEPROMAZINE HYDROCHLORIDE
     Indication: Nausea
     Route: 065
  10. LEVOMEPROMAZINE HYDROCHLORIDE [Suspect]
     Active Substance: LEVOMEPROMAZINE HYDROCHLORIDE
     Indication: Nausea
     Dosage: INFUSION
     Route: 058
  11. LEVOMEPROMAZINE HYDROCHLORIDE [Suspect]
     Active Substance: LEVOMEPROMAZINE HYDROCHLORIDE
     Indication: Nausea
     Route: 065
  12. HALOPERIDOL [Suspect]
     Active Substance: HALOPERIDOL
     Indication: Terminal agitation
     Dosage: INFUSION
     Route: 058
  13. HALOPERIDOL [Suspect]
     Active Substance: HALOPERIDOL
     Indication: Terminal agitation
     Dosage: INFUSION
     Route: 058
  14. HALOPERIDOL [Suspect]
     Active Substance: HALOPERIDOL
     Indication: Terminal agitation
     Route: 065
  15. OCTREOTIDE [Suspect]
     Active Substance: OCTREOTIDE\OCTREOTIDE ACETATE
     Indication: Palliative care
     Dosage: INFUSION
     Route: 058
  16. OCTREOTIDE [Suspect]
     Active Substance: OCTREOTIDE\OCTREOTIDE ACETATE
     Indication: Palliative care
     Dosage: INFUSION
     Route: 058
  17. MORPHINE SULFATE [Suspect]
     Active Substance: MORPHINE SULFATE
     Indication: Pain management
     Dosage: INFUSION
     Route: 058
  18. MORPHINE SULFATE [Suspect]
     Active Substance: MORPHINE SULFATE
     Indication: Pain management
     Dosage: INFUSION
     Route: 058
  19. MORPHINE SULFATE [Suspect]
     Active Substance: MORPHINE SULFATE
     Indication: Pain management
     Route: 065
  20. MORPHINE SULFATE [Suspect]
     Active Substance: MORPHINE SULFATE
     Indication: Pain management
     Route: 065
  21. MORPHINE SULFATE [Suspect]
     Active Substance: MORPHINE SULFATE
     Indication: Pain management
     Route: 065
  22. MORPHINE SULFATE [Suspect]
     Active Substance: MORPHINE SULFATE
     Indication: Pain management
     Route: 065
  23. MORPHINE SULFATE [Suspect]
     Active Substance: MORPHINE SULFATE
     Indication: Pain management
     Route: 065
  24. MORPHINE SULFATE [Suspect]
     Active Substance: MORPHINE SULFATE
     Indication: Pain management
     Route: 065
  25. MORPHINE SULFATE [Suspect]
     Active Substance: MORPHINE SULFATE
     Indication: Pain management
     Route: 065
  26. MORPHINE SULFATE [Suspect]
     Active Substance: MORPHINE SULFATE
     Indication: Pain management
     Route: 065
  27. MORPHINE SULFATE [Suspect]
     Active Substance: MORPHINE SULFATE
     Indication: Pain management
     Dosage: INFUSION
     Route: 058
  28. MORPHINE SULFATE [Suspect]
     Active Substance: MORPHINE SULFATE
     Indication: Pain management
     Route: 065
  29. PROCYCLIDINE [Suspect]
     Active Substance: PROCYCLIDINE
     Indication: Akathisia
     Route: 030
  30. MIDAZOLAM [Suspect]
     Active Substance: MIDAZOLAM
     Indication: Palliative care
     Dosage: INFUSION
     Route: 058
  31. MIDAZOLAM [Suspect]
     Active Substance: MIDAZOLAM
     Indication: Palliative care
     Route: 065
  32. MIDAZOLAM [Suspect]
     Active Substance: MIDAZOLAM
     Indication: Palliative care
     Dosage: INFUSION
     Route: 058
  33. MIDAZOLAM [Suspect]
     Active Substance: MIDAZOLAM
     Indication: Palliative care
     Route: 065
  34. MIDAZOLAM [Suspect]
     Active Substance: MIDAZOLAM
     Indication: Palliative care
     Route: 065
  35. MIDAZOLAM [Suspect]
     Active Substance: MIDAZOLAM
     Indication: Palliative care
     Dosage: INFUSION
     Route: 058
  36. BUTYLSCOPOLAMINE BROMIDE [Suspect]
     Active Substance: BUTYLSCOPOLAMINE BROMIDE
     Indication: Increased upper airway secretion
     Route: 065
  37. BUTYLSCOPOLAMINE BROMIDE [Suspect]
     Active Substance: BUTYLSCOPOLAMINE BROMIDE
     Indication: Increased upper airway secretion
     Route: 065
  38. BUTYLSCOPOLAMINE BROMIDE [Suspect]
     Active Substance: BUTYLSCOPOLAMINE BROMIDE
     Indication: Increased upper airway secretion
     Route: 065
  39. BUTYLSCOPOLAMINE BROMIDE [Suspect]
     Active Substance: BUTYLSCOPOLAMINE BROMIDE
     Indication: Increased upper airway secretion
     Route: 065
  40. GLYCOPYRROLATE [Suspect]
     Active Substance: GLYCOPYRROLATE
     Indication: Increased upper airway secretion
     Route: 065
  41. GLYCOPYRROLATE [Suspect]
     Active Substance: GLYCOPYRROLATE
     Indication: Increased upper airway secretion
     Dosage: INFUSION
     Route: 058
  42. GLYCOPYRROLATE [Suspect]
     Active Substance: GLYCOPYRROLATE
     Indication: Increased upper airway secretion
     Dosage: INFUSION
     Route: 058

REACTIONS (3)
  - Anticholinergic syndrome [Unknown]
  - Psychotic disorder [Unknown]
  - Therapy non-responder [Unknown]
